FAERS Safety Report 5621651-2 (Version None)
Quarter: 2008Q1

REPORT INFORMATION
  Report Type: 
  Country: None (occurrence: None)
  Receive Date: 20080206
  Receipt Date: 20080122
  Transmission Date: 20080703
  Serious: Yes (Hospitalization)
  Sender: FDA-Public Use
  Company Number: 2008SI001244

PATIENT
  Sex: Male

DRUGS (1)
  1. CLOZAPINE [Suspect]

REACTIONS (2)
  - DISEASE RECURRENCE [None]
  - URINARY TRACT INFECTION [None]
